FAERS Safety Report 21755318 (Version 4)
Quarter: 2023Q1

REPORT INFORMATION
  Report Type: Spontaneous
  Country: US (occurrence: US)
  Receive Date: 20221220
  Receipt Date: 20230118
  Transmission Date: 20230417
  Serious: Yes (Hospitalization)
  Sender: FDA-Public Use
  Company Number: US-PFIZER INC-PV202200124760

PATIENT
  Age: 69 Year
  Sex: Female
  Weight: 56.689 kg

DRUGS (1)
  1. NIVESTYM [Suspect]
     Active Substance: FILGRASTIM-AAFI
     Indication: Endometrial cancer
     Dosage: 480 UG

REACTIONS (1)
  - White blood cell count decreased [Not Recovered/Not Resolved]
